FAERS Safety Report 16567342 (Version 1)
Quarter: 2019Q3

REPORT INFORMATION
  Report Type: Report from Study
  Country: IT (occurrence: IT)
  Receive Date: 20190712
  Receipt Date: 20190712
  Transmission Date: 20191004
  Serious: Yes (Other)
  Sender: FDA-Public Use
  Company Number: IT-TEVA-2019-IT-1074998

PATIENT
  Age: 84 Year
  Sex: Female

DRUGS (9)
  1. DIURESIX 10 MG COMPRESSE [Concomitant]
     Indication: HYPERTENSIVE HEART DISEASE
  2. RAMIPRIL/IDROCLOROTIAZIDE [Concomitant]
     Active Substance: HYDROCHLOROTHIAZIDE\RAMIPRIL
     Indication: ACCELERATED HYPERTENSION
  3. ALLOPURINOL. [Suspect]
     Active Substance: ALLOPURINOL
     Indication: HYPERURICAEMIA
     Dosage: 300MG
     Route: 048
     Dates: start: 20190409, end: 20190521
  4. ESOMEPRAZOLE SODIUM. [Concomitant]
     Active Substance: ESOMEPRAZOLE SODIUM
     Indication: PROPHYLAXIS AGAINST GASTROINTESTINAL ULCER
  5. DIBASE 10.000 U.I./ML GOCCE ORALI, SOLUZIONE [Concomitant]
     Active Substance: CHOLECALCIFEROL
     Indication: HYPOVITAMINOSIS
  6. PRADAXA [Concomitant]
     Active Substance: DABIGATRAN ETEXILATE MESYLATE
     Indication: THROMBOSIS PROPHYLAXIS
  7. SELES BETA 100 MG COMPRESSE [Concomitant]
     Indication: HYPERTENSIVE HEART DISEASE
  8. MEDROL 4 MG COMPRESSE [Concomitant]
     Indication: POLYMYALGIA RHEUMATICA
  9. AMLODIPINE [Concomitant]
     Active Substance: AMLODIPINE BESYLATE
     Indication: HYPERTENSION

REACTIONS (4)
  - Rash maculo-papular [Recovering/Resolving]
  - Rash pruritic [Recovering/Resolving]
  - Dermatosis [Recovering/Resolving]
  - Dermatitis [Recovering/Resolving]

NARRATIVE: CASE EVENT DATE: 20190517
